FAERS Safety Report 10463285 (Version 2)
Quarter: 2014Q4

REPORT INFORMATION
  Report Type: Spontaneous
  Country: US (occurrence: US)
  Receive Date: 20140919
  Receipt Date: 20141016
  Transmission Date: 20150528
  Serious: No
  Sender: FDA-Public Use
  Company Number: US-BIOGENIDEC-2014BI094228

PATIENT
  Age: 59 Year
  Sex: Female

DRUGS (19)
  1. PROVIGIL [Concomitant]
     Active Substance: MODAFINIL
  2. VENLAFAXINE HCL [Concomitant]
     Active Substance: VENLAFAXINE HYDROCHLORIDE
  3. CARBIDOPA-LEVODOPA ER [Concomitant]
  4. VITAMIN C ER [Concomitant]
  5. LEVOTHYROXINE SODIUM. [Concomitant]
     Active Substance: LEVOTHYROXINE SODIUM
  6. NAMENDA [Concomitant]
     Active Substance: MEMANTINE HYDROCHLORIDE
  7. CLONAZEPAM. [Concomitant]
     Active Substance: CLONAZEPAM
  8. CRANBERRY CONCENTRATE [Concomitant]
     Active Substance: CRANBERRY CONCENTRATE
  9. ASPIRIN LOW DOSE [Concomitant]
     Active Substance: ASPIRIN
  10. METHENAMINE HIPPURATE. [Concomitant]
     Active Substance: METHENAMINE HIPPURATE
  11. BACLOFEN. [Concomitant]
     Active Substance: BACLOFEN
  12. OXYBUTYNIN [Concomitant]
     Active Substance: OXYBUTYNIN
  13. VITAMIN D3 [Concomitant]
     Active Substance: CHOLECALCIFEROL
  14. TECFIDERA [Suspect]
     Active Substance: DIMETHYL FUMARATE
     Indication: MULTIPLE SCLEROSIS
     Route: 048
     Dates: start: 20140808
  15. TIZANIDINE COMFORT PAC [Concomitant]
  16. PRAVASTATIN SODIUM. [Concomitant]
     Active Substance: PRAVASTATIN SODIUM
  17. OMEPRAZOLE. [Concomitant]
     Active Substance: OMEPRAZOLE
  18. LYRICA [Concomitant]
     Active Substance: PREGABALIN
  19. CALCIUM [Concomitant]
     Active Substance: CALCIUM

REACTIONS (1)
  - Pollakiuria [Not Recovered/Not Resolved]
